FAERS Safety Report 5777849-6 (Version None)
Quarter: 2008Q2

REPORT INFORMATION
  Report Type: 
  Country: None (occurrence: None)
  Receive Date: 20080601
  Receipt Date: 20080103
  Transmission Date: 20081010
  Serious: No
  Sender: FDA-Public Use
  Company Number: US200801000754

PATIENT
  Age: 62 Year
  Sex: Female
  Weight: 54.4 kg

DRUGS (9)
  1. BYETTA [Suspect]
     Indication: TYPE 2 DIABETES MELLITUS
     Dosage: 5 UG, 2/D, SUBCUTANEOUS
     Route: 058
     Dates: start: 20060301
  2. GLIPIZIDE [Concomitant]
  3. DRUG USED IN DIABETES [Concomitant]
  4. CRESTOR [Concomitant]
  5. NEXIUM [Concomitant]
  6. OMEPRAZOLE [Concomitant]
  7. VYTORIN [Concomitant]
  8. METFORMIN HCL [Concomitant]
  9. LISINOPRIL /USA/ (LISINOPRIL) [Concomitant]

REACTIONS (8)
  - ALOPECIA [None]
  - BLOOD GLUCOSE DECREASED [None]
  - BLOOD POTASSIUM INCREASED [None]
  - CARBON DIOXIDE INCREASED [None]
  - DIARRHOEA [None]
  - DRUG EFFECT DECREASED [None]
  - TREMOR [None]
  - WEIGHT DECREASED [None]
